FAERS Safety Report 19314528 (Version 2)
Quarter: 2021Q2

REPORT INFORMATION
  Report Type: Spontaneous
  Country: FR (occurrence: FR)
  Receive Date: 20210527
  Receipt Date: 20210618
  Transmission Date: 20210717
  Serious: Yes (Other)
  Sender: FDA-Public Use
  Company Number: FR-PFIZER INC-2021542804

PATIENT
  Age: 49 Year
  Sex: Female

DRUGS (3)
  1. OLAPARIB. [Suspect]
     Active Substance: OLAPARIB
     Indication: CERVIX CARCINOMA
     Dosage: 800 MG, 2X/DAY
     Route: 065
     Dates: start: 2017
  2. OLAPARIB. [Suspect]
     Active Substance: OLAPARIB
     Dosage: 400 MG, 2X/DAY
     Route: 065
  3. BEVACIZUMAB. [Suspect]
     Active Substance: BEVACIZUMAB
     Indication: CERVIX CARCINOMA
     Dosage: UNK
     Dates: start: 2016

REACTIONS (3)
  - Anaemia [Unknown]
  - Nausea [Unknown]
  - Asthenia [Unknown]
